FAERS Safety Report 19016637 (Version 6)
Quarter: 2021Q2

REPORT INFORMATION
  Report Type: Spontaneous
  Country: US (occurrence: US)
  Receive Date: 20210317
  Receipt Date: 20210628
  Transmission Date: 20210717
  Serious: Yes (Hospitalization)
  Sender: FDA-Public Use
  Company Number: US-GLOBAL BLOOD THERAPEUTICS INC-US-GBT-21-00604

PATIENT
  Age: 27 Year
  Sex: Female

DRUGS (2)
  1. OXBRYTA [Suspect]
     Active Substance: VOXELOTOR
     Route: 048
     Dates: start: 20201201, end: 2021
  2. OXBRYTA [Suspect]
     Active Substance: VOXELOTOR
     Indication: SICKLE CELL DISEASE
     Route: 048
     Dates: start: 20201130, end: 2021

REACTIONS (8)
  - Product dose omission issue [Unknown]
  - Sickle cell anaemia with crisis [Unknown]
  - Therapy non-responder [Unknown]
  - Sickle cell anaemia with crisis [Not Recovered/Not Resolved]
  - Therapy cessation [Unknown]
  - Sickle cell anaemia with crisis [Not Recovered/Not Resolved]
  - Transfusion [Not Recovered/Not Resolved]
  - Off label use [Unknown]

NARRATIVE: CASE EVENT DATE: 20201201
